FAERS Safety Report 15613632 (Version 2)
Quarter: 2019Q1

REPORT INFORMATION
  Report Type: Spontaneous
  Country: US (occurrence: US)
  Receive Date: 20181113
  Receipt Date: 20190205
  Transmission Date: 20190417
  Serious: Yes (Hospitalization, Other)
  Sender: FDA-Public Use
  Company Number: US-NOVOPROD-629502

PATIENT
  Age: 55 Year
  Sex: Female
  Weight: 81.86 kg

DRUGS (4)
  1. COENZYME Q10 [Concomitant]
     Active Substance: UBIDECARENONE
     Dosage: 100 MG, QD
     Route: 048
     Dates: start: 2014
  2. VICTOZA [Suspect]
     Active Substance: LIRAGLUTIDE
     Indication: TYPE 2 DIABETES MELLITUS
     Dosage: 1.8 MG, QD
     Route: 058
     Dates: start: 20110307, end: 2018
  3. FENOFIBRATE. [Concomitant]
     Active Substance: FENOFIBRATE
     Indication: PRODUCT USED FOR UNKNOWN INDICATION
     Dosage: 160 MG, QD
     Route: 048
     Dates: start: 2012
  4. METFORMIN [Concomitant]
     Active Substance: METFORMIN HYDROCHLORIDE
     Indication: PRODUCT USED FOR UNKNOWN INDICATION
     Dosage: 2000 MG, QD
     Route: 048
     Dates: start: 2010

REACTIONS (7)
  - Cerebrovascular accident [Recovered/Resolved]
  - Wrong technique in product usage process [Recovered/Resolved]
  - Glycosylated haemoglobin increased [Recovered/Resolved]
  - Cerebrovascular disorder [Unknown]
  - Hospitalisation [Recovered/Resolved]
  - Hypertension [Unknown]
  - Stress [Unknown]

NARRATIVE: CASE EVENT DATE: 2011
